FAERS Safety Report 9778576 (Version 2)
Quarter: 2013Q4

REPORT INFORMATION
  Report Type: Spontaneous
  Country: US (occurrence: US)
  Receive Date: 20131223
  Receipt Date: 20131224
  Transmission Date: 20140711
  Serious: Yes (Death, Hospitalization, Other)
  Sender: FDA-Public Use
  Company Number: CHPA2013US018655

PATIENT
  Age: 83 Year
  Sex: Male

DRUGS (1)
  1. KERI ADVANCED [Suspect]
     Indication: DRY SKIN
     Dosage: UNK
     Route: 061
     Dates: end: 2012

REACTIONS (8)
  - Death [Fatal]
  - Venous occlusion [Unknown]
  - Skin cancer [Recovered/Resolved]
  - Emphysema [Unknown]
  - Cerebrovascular accident [Recovered/Resolved]
  - Dyspnoea [Unknown]
  - Coma [Unknown]
  - Muscular weakness [Unknown]
